FAERS Safety Report 13813893 (Version 2)
Quarter: 2020Q1

REPORT INFORMATION
  Report Type: Spontaneous
  Country: US (occurrence: US)
  Receive Date: 20170731
  Receipt Date: 20200327
  Transmission Date: 20200409
  Serious: No
  Sender: FDA-Public Use
  Company Number: US-PFIZER INC-2017329427

PATIENT
  Age: 56 Year
  Sex: Female

DRUGS (6)
  1. FORTEO [Concomitant]
     Active Substance: TERIPARATIDE
  2. METHOTREXATE. [Concomitant]
     Active Substance: METHOTREXATE
     Dosage: 1 G, UNK
  3. XELJANZ [Suspect]
     Active Substance: TOFACITINIB CITRATE
     Indication: RHEUMATOID ARTHRITIS
     Dosage: 5 MG, TWICE A DAY
     Route: 048
     Dates: start: 20170517
  4. LEFLUNOMIDE. [Concomitant]
     Active Substance: LEFLUNOMIDE
  5. PRENATAL [Concomitant]
     Active Substance: VITAMINS
  6. XELJANZ [Suspect]
     Active Substance: TOFACITINIB CITRATE
     Dosage: 5 MG,TWICE A DAY
     Route: 048
     Dates: start: 201711

REACTIONS (2)
  - Sinus congestion [Unknown]
  - Fatigue [Unknown]

NARRATIVE: CASE EVENT DATE: 2017
